FAERS Safety Report 9879933 (Version 2)
Quarter: 2014Q1

REPORT INFORMATION
  Report Type: Report from Study
  Country: US (occurrence: US)
  Receive Date: 20140207
  Receipt Date: 20140312
  Transmission Date: 20141002
  Serious: Yes (Death)
  Sender: FDA-Public Use
  Company Number: US-ROCHE-1345220

PATIENT
  Age: 66 Year
  Sex: Male
  Weight: 93.07 kg

DRUGS (2)
  1. VALCYTE [Suspect]
     Indication: EPSTEIN-BARR VIRAEMIA
     Route: 048
     Dates: start: 20121106, end: 20130620
  2. BRENTUXIMAB VEDOTIN [Concomitant]
     Indication: HODGKIN^S DISEASE
     Dosage: 4 CYCLE
     Route: 065

REACTIONS (3)
  - Sepsis [Fatal]
  - Pulseless electrical activity [Fatal]
  - Respiratory distress [Fatal]
